FAERS Safety Report 8737838 (Version 3)
Quarter: 2012Q4

REPORT INFORMATION
  Report Type: 
  Country: US (occurrence: US)
  Receive Date: 20120822
  Receipt Date: 20121027
  Transmission Date: 20130627
  Serious: Yes (Hospitalization, Disabling)
  Sender: FDA-Public Use
  Company Number: US-009507513-1208USA003335

PATIENT
  Sex: Female

DRUGS (1)
  1. IMPLANON [Suspect]
     Indication: CONTRACEPTION
     Dosage: 1 DF, UNK
     Route: 030

REACTIONS (4)
  - Hypoaesthesia [Unknown]
  - Complication of device insertion [Recovered/Resolved]
  - Complication of device removal [Recovered/Resolved]
  - Incorrect route of drug administration [Unknown]
